FAERS Safety Report 5026569-4 (Version None)
Quarter: 2006Q2

REPORT INFORMATION
  Report Type: 
  Country: None (occurrence: None)
  Receive Date: 20060615
  Receipt Date: 20060103
  Transmission Date: 20061013
  Serious: Yes (Other)
  Sender: FDA-Public Use
  Company Number: US-ROCHE-430587

PATIENT
  Age: 52 Year
  Sex: Female

DRUGS (10)
  1. PEGASYS [Suspect]
     Indication: HEPATITIS C
     Route: 058
     Dates: start: 20051114, end: 20051229
  2. PEGASYS [Suspect]
     Route: 058
     Dates: start: 20060114
  3. COPEGUS [Suspect]
     Indication: HEPATITIS C
     Route: 048
     Dates: start: 20051114, end: 20051215
  4. COPEGUS [Suspect]
     Route: 048
     Dates: start: 20051215, end: 20051229
  5. COPEGUS [Suspect]
     Dosage: REDUCED FROM 800 MG DAILY TO 400 MG DAILY AS A RESULT OF THE PATIENT'S LABWORK.
     Route: 048
     Dates: start: 20060114
  6. NEUPOGEN [Suspect]
     Route: 065
     Dates: start: 20060101, end: 20060327
  7. NEUPOGEN [Suspect]
     Route: 065
  8. CITALOPRAM HYDROBROMIDE [Concomitant]
     Indication: DEPRESSION
     Route: 048
  9. ATIVAN [Concomitant]
     Indication: SOMNOLENCE
     Route: 048
  10. RESTORIL [Concomitant]
     Indication: SOMNOLENCE
     Route: 048

REACTIONS (22)
  - ABNORMAL BEHAVIOUR [None]
  - ALOPECIA [None]
  - BLOOD THYROID STIMULATING HORMONE INCREASED [None]
  - CYSTITIS [None]
  - EXOSTOSIS [None]
  - EYELID MARGIN CRUSTING [None]
  - EYELID OEDEMA [None]
  - GRANULOCYTOPENIA [None]
  - HAEMOGLOBIN DECREASED [None]
  - HYPOTHYROIDISM [None]
  - INAPPROPRIATE AFFECT [None]
  - INFECTION [None]
  - INSOMNIA [None]
  - LEUKOPENIA [None]
  - MIGRAINE [None]
  - NEUTROPENIA [None]
  - RASH [None]
  - SINUSITIS [None]
  - THERAPY NON-RESPONDER [None]
  - THYROID DISORDER [None]
  - WEIGHT DECREASED [None]
  - WHITE BLOOD CELL COUNT DECREASED [None]
